FAERS Safety Report 21773017 (Version 1)
Quarter: 2022Q4

REPORT INFORMATION
  Report Type: Spontaneous
  Country: FR (occurrence: FR)
  Receive Date: 20221223
  Receipt Date: 20221223
  Transmission Date: 20230112
  Serious: Yes (Hospitalization)
  Sender: FDA-Public Use
  Company Number: None

PATIENT
  Age: 76 Year
  Sex: Female

DRUGS (8)
  1. RAMIPRIL [Suspect]
     Active Substance: RAMIPRIL
     Indication: Cardiovascular event prophylaxis
     Dosage: UNIT DOSE : 1 .25 MG, FREQUENCY TIME : 1 DAY, DURATION :  1 MONTHS
     Route: 065
     Dates: start: 20221021, end: 202211
  2. ALLOPURINOL [Suspect]
     Active Substance: ALLOPURINOL
     Indication: Gout
     Dosage: UNIT DOSE : 100 MG, FREQUENCY TIME : 1 DAY , DURATION :   1 MONTHS
     Route: 065
     Dates: start: 20221021, end: 202211
  3. SPIRONOLACTONE [Concomitant]
     Active Substance: SPIRONOLACTONE
     Indication: Product used for unknown indication
     Dosage: UNIT DOSE : 25 MG , FREQUENCY TIME : 1 DAY, THERAPY START DATE : ASKU
  4. FUROSEMIDE [Concomitant]
     Active Substance: FUROSEMIDE
     Indication: Product used for unknown indication
     Dosage: UNIT DOSE : 500 MG , FREQUENCY TIME : 1 DAY, THERAPY START DATE : ASKU
  5. APIXABAN [Concomitant]
     Active Substance: APIXABAN
     Indication: Product used for unknown indication
     Dosage: UNIT DOSE : 10 MG , FREQUENCY TIME : 1 DAY, THERAPY START DATE : ASKU
  6. LANSOPRAZOLE [Concomitant]
     Active Substance: LANSOPRAZOLE
     Indication: Product used for unknown indication
     Dosage: UNIT DOSE : 15 MG , FREQUENCY TIME : 1 DAY, THERAPY START DATE : ASKU
  7. BISOPROLOL FUMARATE [Concomitant]
     Active Substance: BISOPROLOL FUMARATE
     Indication: Product used for unknown indication
     Dosage: UNIT DOSE : 2.5 MG , FREQUENCY TIME : 1 DAY, THERAPY START DATE : ASKU
  8. PRAVASTATIN SODIUM [Concomitant]
     Active Substance: PRAVASTATIN SODIUM
     Indication: Product used for unknown indication
     Dosage: UNIT DOSE : 1 DOSAGE FORM , FREQUENCY TIME : 1 DAY, THERAPY START DATE : ASKU

REACTIONS (1)
  - Drug reaction with eosinophilia and systemic symptoms [Recovered/Resolved]

NARRATIVE: CASE EVENT DATE: 20221107
